FAERS Safety Report 24960319 (Version 2)
Quarter: 2025Q1

REPORT INFORMATION
  Report Type: Spontaneous
  Country: US (occurrence: US)
  Receive Date: 20250212
  Receipt Date: 20250214
  Transmission Date: 20250409
  Serious: Yes (Hospitalization)
  Sender: MYLAN
  Company Number: US-MYLANLABS-2025M1011865

PATIENT
  Age: 69 Year
  Sex: Male

DRUGS (3)
  1. TICAGRELOR [Interacting]
     Active Substance: TICAGRELOR
     Indication: Antiplatelet therapy
     Route: 065
  2. PHENYTOIN [Interacting]
     Active Substance: PHENYTOIN
     Indication: Seizure
     Dosage: 300 MILLIGRAM, QD
     Route: 065
  3. TENECTEPLASE [Concomitant]
     Active Substance: TENECTEPLASE
     Indication: Drug therapy
     Route: 065

REACTIONS (2)
  - Labelled drug-drug interaction medication error [Unknown]
  - Therapeutic product effect decreased [Unknown]
